FAERS Safety Report 9603144 (Version 4)
Quarter: 2014Q2

REPORT INFORMATION
  Report Type: Report from Study
  Country: JP (occurrence: JP)
  Receive Date: 20131007
  Receipt Date: 20140416
  Transmission Date: 20141212
  Serious: Yes (Hospitalization, Other)
  Sender: FDA-Public Use
  Company Number: JP-TAKEDA-2013TJP000921

PATIENT
  Age: 61 Year
  Sex: Female
  Weight: 83 kg

DRUGS (7)
  1. ALOGLIPTIN [Suspect]
     Indication: TYPE 2 DIABETES MELLITUS
     Dosage: 25 MG, QD
     Route: 048
     Dates: start: 20130424, end: 20130827
  2. PIOGLITAZONE [Suspect]
     Indication: TYPE 2 DIABETES MELLITUS
     Dosage: UNK, QD
     Route: 048
     Dates: start: 20130717, end: 20130827
  3. BLOPRESS [Concomitant]
     Indication: HYPERTENSION
     Dosage: 4 MG, QD
     Route: 048
     Dates: start: 20130130
  4. LULICON [Concomitant]
     Indication: TINEA PEDIS
     Dosage: UNK UNK, QD
     Route: 062
     Dates: start: 20130424
  5. ZEFNART [Concomitant]
     Indication: TINEA PEDIS
     Dosage: UNK UNK, QD
     Route: 062
     Dates: start: 20130424
  6. HIRUDOID                           /00723701/ [Concomitant]
     Indication: XERODERMA
     Dosage: UNK UNK, QD
     Route: 062
     Dates: start: 20130424
  7. PETROLATUM SALICYLICUM [Concomitant]
     Indication: PALMOPLANTAR KERATODERMA
     Dosage: UNK, QD
     Route: 062
     Dates: start: 20130424

REACTIONS (1)
  - Pancreatic carcinoma [Recovering/Resolving]
